FAERS Safety Report 21346086 (Version 1)
Quarter: 2022Q3

REPORT INFORMATION
  Report Type: Report from Study
  Country: CZ (occurrence: CZ)
  Receive Date: 20220917
  Receipt Date: 20220917
  Transmission Date: 20221027
  Serious: Yes (Other)
  Sender: FDA-Public Use
  Company Number: CZ-CELLTRION INC.-2022CZ013503

PATIENT

DRUGS (5)
  1. INFLIXIMAB [Suspect]
     Active Substance: INFLIXIMAB
     Indication: Crohn^s disease
     Dosage: UNK
     Dates: start: 20200714
  2. INFLIXIMAB [Suspect]
     Active Substance: INFLIXIMAB
     Dosage: 10MG/KG I.V. EVERY 8 WEEKS / WHEN ONLY 7MG/KG, THEN AGAIN 10MG/KG FOR SUBOPTIMAL LEVELS
     Route: 042
     Dates: start: 20211213
  3. INFLIXIMAB [Suspect]
     Active Substance: INFLIXIMAB
     Dosage: 10MG/KG I.V. EVERY 8 WEEKS / WHEN ONLY 7MG/KG, THEN AGAIN 10MG/KG FOR SUBOPTIMAL LEVELS
     Route: 042
     Dates: start: 20220215
  4. IMURAN [Concomitant]
     Active Substance: AZATHIOPRINE
  5. ALLOPURINOL [Concomitant]
     Active Substance: ALLOPURINOL

REACTIONS (2)
  - COVID-19 [Recovered/Resolved]
  - Overdose [Unknown]

NARRATIVE: CASE EVENT DATE: 20220201
